FAERS Safety Report 6325956-1 (Version None)
Quarter: 2009Q3

REPORT INFORMATION
  Report Type: 
  Country: None (occurrence: None)
  Receive Date: 20090818
  Receipt Date: 20090608
  Transmission Date: 20100115
  Serious: No
  Sender: FDA-Public Use
  Company Number: WAES 0904USA01505

PATIENT
  Sex: Female

DRUGS (3)
  1. JANUVIA [Suspect]
     Dosage: 100 MG/DAILY/PO
     Route: 048
     Dates: start: 20090409
  2. GLIMEPIRIDE [Suspect]
  3. HYDROCHLOROTHIAZIDE [Suspect]
     Dosage: PO
     Route: 048

REACTIONS (3)
  - DYSURIA [None]
  - VULVOVAGINAL PRURITUS [None]
  - WRONG TECHNIQUE IN DRUG USAGE PROCESS [None]
